FAERS Safety Report 17588926 (Version 1)
Quarter: 2020Q1

REPORT INFORMATION
  Report Type: Spontaneous
  Country: FR (occurrence: FR)
  Receive Date: 20200327
  Receipt Date: 20200327
  Transmission Date: 20200409
  Serious: Yes (Other)
  Sender: FDA-Public Use
  Company Number: FR-TEVA-2020-FR-1211382

PATIENT
  Age: 20 Year
  Sex: Male

DRUGS (2)
  1. PARACETAMOL [Concomitant]
     Active Substance: ACETAMINOPHEN
     Indication: RHINITIS
     Route: 048
     Dates: start: 20200308
  2. CLARITHROMYCINE [Suspect]
     Active Substance: CLARITHROMYCIN
     Indication: RHINITIS
     Route: 048
     Dates: start: 20200308, end: 20200309

REACTIONS (2)
  - Leukoplakia oral [Recovering/Resolving]
  - Pruritus genital [Recovering/Resolving]

NARRATIVE: CASE EVENT DATE: 20200309
